FAERS Safety Report 5829774-X (Version None)
Quarter: 2008Q3

REPORT INFORMATION
  Report Type: 
  Country: None (occurrence: None)
  Receive Date: 20080801
  Receipt Date: 20080423
  Transmission Date: 20090109
  Serious: Yes (Hospitalization, Disabling, Other)
  Sender: FDA-Public Use
  Company Number: DE-BAYER-200817041GPV

PATIENT
  Age: 44 Year
  Sex: Female
  Weight: 89 kg

DRUGS (5)
  1. BETAFERON [Suspect]
     Indication: CARDIOMYOPATHY
     Route: 058
     Dates: start: 20050917, end: 20060317
  2. LEVOTHYROXINE SODIUM [Concomitant]
     Indication: HYPOTHYROIDISM
  3. CANDESARTAN CILEXETIL [Concomitant]
  4. TORSEMIDE [Concomitant]
  5. SPIRO CT [Concomitant]

REACTIONS (10)
  - COGNITIVE DISORDER [None]
  - COUGH [None]
  - DISTURBANCE IN ATTENTION [None]
  - FATIGUE [None]
  - HYPERTENSION [None]
  - LOSS OF EMPLOYMENT [None]
  - MAJOR DEPRESSION [None]
  - MEMORY IMPAIRMENT [None]
  - SOMATOFORM DISORDER [None]
  - STRESS [None]
